FAERS Safety Report 5450032-X (Version None)
Quarter: 2007Q3

REPORT INFORMATION
  Report Type: 
  Country: None (occurrence: None)
  Receive Date: 20070912
  Receipt Date: 20070831
  Transmission Date: 20080115
  Serious: Yes (Hospitalization)
  Sender: FDA-Public Use
  Company Number: HQWYE012205SEP07

PATIENT
  Sex: Male
  Weight: 90.8 kg

DRUGS (4)
  1. EFFEXOR XR [Suspect]
     Indication: SPINAL CORD INJURY
     Route: 048
     Dates: start: 20070719, end: 20070724
  2. EFFEXOR XR [Interacting]
     Indication: MAJOR DEPRESSION
  3. ZYVOX [Interacting]
     Indication: PNEUMONIA
     Dosage: UNKNOWN
     Route: 042
     Dates: start: 20070101
  4. ZOLOFT [Interacting]
     Dosage: UNKNOWN
     Route: 065
     Dates: end: 20070718

REACTIONS (3)
  - DRUG INTERACTION [None]
  - HYPERTHERMIA MALIGNANT [None]
  - PYREXIA [None]
